FAERS Safety Report 9185733 (Version 1)
Quarter: 2012Q4

REPORT INFORMATION
  Report Type: 
  Country: DE (occurrence: DE)
  Receive Date: 20121031
  Receipt Date: 20121031
  Transmission Date: 20130627
  Serious: Yes (Other)
  Sender: FDA-Public Use
  Company Number: DE-JNJFOC-20121014882

PATIENT

DRUGS (2)
  1. XARELTO [Suspect]
     Indication: PRODUCT USED FOR UNKNOWN INDICATION
     Route: 065
  2. MARCUMAR [Concomitant]

REACTIONS (4)
  - Blood count abnormal [Unknown]
  - Anaemia [Unknown]
  - White blood cell count abnormal [Unknown]
  - Platelet count decreased [Unknown]
